FAERS Safety Report 4950055-0 (Version None)
Quarter: 2006Q1

REPORT INFORMATION
  Report Type: 
  Country: None (occurrence: None)
  Receive Date: 20060320
  Receipt Date: 20060320
  Transmission Date: 20060701
  Serious: Yes (Hospitalization)
  Sender: FDA-Public Use
  Company Number: None

PATIENT
  Age: 60 Year
  Sex: Female

DRUGS (12)
  1. LYRICA [Suspect]
     Indication: TRIGEMINAL NEURALGIA
     Dosage: PO
     Route: 048
  2. ALBUTEROL [Concomitant]
  3. BACLOFEN [Concomitant]
  4. DURAGESIC-100 [Concomitant]
  5. DARVOCET [Concomitant]
  6. FOSAMAX [Concomitant]
  7. TRILEPTAL [Concomitant]
  8. PLAVIX [Concomitant]
  9. OSCAL [Concomitant]
  10. ZOCOR [Concomitant]
  11. LEVOTHYROXINE SODIUM [Concomitant]
  12. PREDNISONE [Concomitant]

REACTIONS (4)
  - ABASIA [None]
  - ASTHENIA [None]
  - COORDINATION ABNORMAL [None]
  - FACIAL PAIN [None]
